FAERS Safety Report 10194362 (Version 1)
Quarter: 2014Q2

REPORT INFORMATION
  Report Type: Spontaneous
  Country: US (occurrence: US)
  Receive Date: 20140526
  Receipt Date: 20140526
  Transmission Date: 20141212
  Serious: No
  Sender: FDA-Public Use
  Company Number: US-BIOGENIDEC-2014BI048469

PATIENT
  Age: 70 Year
  Sex: Male

DRUGS (8)
  1. TYSABRI [Suspect]
     Indication: CROHN^S DISEASE
     Route: 042
     Dates: start: 20140407
  2. OMEPRAZOLE [Concomitant]
  3. TAXIL [Concomitant]
     Indication: ANTIDEPRESSANT THERAPY
  4. FLOMAX [Concomitant]
  5. AMBIEN [Concomitant]
     Indication: SLEEP DISORDER
  6. VICODIN [Concomitant]
  7. ACETAMINOPHEN [Concomitant]
     Indication: PREMEDICATION
  8. BENADRYL [Concomitant]
     Indication: PREMEDICATION

REACTIONS (1)
  - Rash pruritic [Recovered/Resolved]
